FAERS Safety Report 6674505-7 (Version None)
Quarter: 2010Q2

REPORT INFORMATION
  Report Type: 
  Country: None (occurrence: None)
  Receive Date: 20100409
  Receipt Date: 20100329
  Transmission Date: 20101027
  Serious: Yes (Other)
  Sender: FDA-Public Use
  Company Number: US-PFIZER INC-2010040805

PATIENT
  Sex: Male
  Weight: 61.678 kg

DRUGS (2)
  1. SUTENT [Suspect]
     Indication: RENAL CANCER
     Dosage: 50 MG, 1X/DAY
     Dates: start: 20100301
  2. ACTOS [Concomitant]
     Indication: DIABETES MELLITUS
     Dosage: 45 MG, 1X/DAY

REACTIONS (4)
  - ANAEMIA [None]
  - EPISTAXIS [None]
  - GENITAL LESION [None]
  - HAEMATOCHEZIA [None]
